FAERS Safety Report 8699838 (Version 4)
Quarter: 2013Q3

REPORT INFORMATION
  Report Type: Spontaneous
  Country: US (occurrence: US)
  Receive Date: 20120802
  Receipt Date: 20130913
  Transmission Date: 20140515
  Serious: No
  Sender: FDA-Public Use
  Company Number: US-ASTRAZENECA-2012SE50759

PATIENT
  Age: 86 Year
  Sex: Male
  Weight: 95.3 kg

DRUGS (6)
  1. NEXIUM [Suspect]
     Indication: GASTROOESOPHAGEAL REFLUX DISEASE
     Route: 048
  2. DILTIAZEM [Concomitant]
  3. LASIK [Concomitant]
  4. RISPERDAL [Concomitant]
  5. WARFARIN [Concomitant]
  6. XANAX [Concomitant]

REACTIONS (8)
  - Excessive masturbation [Unknown]
  - Abnormal behaviour [Unknown]
  - Dysphagia [Unknown]
  - Choking [Unknown]
  - Vomiting [Unknown]
  - Malaise [Unknown]
  - Off label use [Unknown]
  - Drug dose omission [Unknown]
